FAERS Safety Report 9862433 (Version 1)
Quarter: 2014Q1

REPORT INFORMATION
  Report Type: Spontaneous
  Country: US (occurrence: US)
  Receive Date: 20140203
  Receipt Date: 20140203
  Transmission Date: 20141002
  Serious: Yes (Other)
  Sender: FDA-Public Use
  Company Number: CHPA2014US001351

PATIENT
  Age: 67 Year
  Sex: Female

DRUGS (5)
  1. EXCEDRIN SINUS HEADACHE [Suspect]
     Indication: MIGRAINE
     Dosage: UNK, A COUPLE TIMES A MONTH
     Route: 048
  2. EXCEDRIN SINUS HEADACHE [Suspect]
     Indication: SINUS DISORDER
  3. EXCEDRIN SINUS HEADACHE [Suspect]
     Indication: OFF LABEL USE
  4. EXCEDRIN MIGRAINE [Suspect]
     Route: 048
  5. TYLENOL [Concomitant]

REACTIONS (1)
  - Hypertension [Unknown]
